FAERS Safety Report 9738963 (Version 1)
Quarter: 2013Q4

REPORT INFORMATION
  Report Type: Spontaneous
  Country: IT (occurrence: IT)
  Receive Date: 20131209
  Receipt Date: 20131209
  Transmission Date: 20140711
  Serious: Yes (Hospitalization)
  Sender: FDA-Public Use
  Company Number: PHHY2013IT142164

PATIENT
  Age: 66 Year
  Sex: Female

DRUGS (9)
  1. ZOMETA [Suspect]
     Dosage: 4 MG, CYCLIC
     Route: 042
     Dates: start: 20081201, end: 20120109
  2. AMLODIPINE [Concomitant]
     Dosage: UNK UKN, UNK
  3. FUROSEMIDE [Concomitant]
     Dosage: UNK UKN, UNK
  4. REVLIMID [Concomitant]
     Indication: PLASMA CELL MYELOMA
     Dosage: 10 MG, UNK
     Route: 048
  5. SINTROM [Concomitant]
     Dosage: UNK UKN, UNK
  6. DIDROGYL [Concomitant]
     Dosage: UNK UKN, UNK
  7. INEGY [Concomitant]
     Dosage: UNK UKN, UNK
  8. PARIET [Concomitant]
     Dosage: UNK UKN, UNK
  9. LANTUS [Concomitant]
     Dosage: UNK UKN, UNK

REACTIONS (1)
  - Osteonecrosis [Recovered/Resolved]
